FAERS Safety Report 7251380-3 (Version None)
Quarter: 2011Q1

REPORT INFORMATION
  Report Type: 
  Country: None (occurrence: None)
  Receive Date: 20110128
  Receipt Date: 20110124
  Transmission Date: 20110831
  Serious: Yes (Other)
  Sender: FDA-Public Use
  Company Number: GR-PFIZER INC-2011017115

PATIENT
  Age: 52 Year
  Sex: Female

DRUGS (1)
  1. XALATAN [Suspect]
     Indication: GLAUCOMA
     Dosage: 1 DROP PER EYE, 1X/DAY
     Route: 047
     Dates: start: 20101101

REACTIONS (1)
  - PAPILLOEDEMA [None]
